FAERS Safety Report 5102644-0 (Version None)
Quarter: 2006Q3

REPORT INFORMATION
  Report Type: 
  Country: None (occurrence: None)
  Receive Date: 20060912
  Receipt Date: 20060829
  Transmission Date: 20061208
  Serious: Yes (Hospitalization)
  Sender: FDA-Public Use
  Company Number: GB-ROCHE-462506

PATIENT

DRUGS (2)
  1. ACCUTANE [Suspect]
     Indication: DRUG USE FOR UNKNOWN INDICATION
     Route: 065
  2. IMIQUIMOD [Interacting]
     Route: 065

REACTIONS (3)
  - ANOGENITAL WARTS [None]
  - DRUG INTERACTION [None]
  - LOCAL REACTION [None]
